FAERS Safety Report 5018728-1 (Version None)
Quarter: 2006Q2

REPORT INFORMATION
  Report Type: 
  Country: None (occurrence: None)
  Receive Date: 20060606
  Receipt Date: 20051123
  Transmission Date: 20061013
  Serious: Yes (Death, Hospitalization, Disabling)
  Sender: FDA-Public Use
  Company Number: US-ROCHE-426618

PATIENT
  Age: 16 Year
  Sex: Female
  Weight: 68 kg

DRUGS (11)
  1. ACCUTANE [Suspect]
     Indication: ACNE
     Route: 048
     Dates: start: 19930815, end: 19931130
  2. ACCUTANE [Suspect]
     Dosage: ACCUTANE 40 - 80 ALTERNATING.
     Route: 048
     Dates: start: 19930716
  3. ASACOL [Concomitant]
  4. IMURAN [Concomitant]
  5. PREDNISONE [Concomitant]
     Indication: AUTOIMMUNE HEPATITIS
  6. PHENERGAN HCL [Concomitant]
  7. CIPRO [Concomitant]
  8. TEGRETOL [Concomitant]
  9. DEMEROL [Concomitant]
  10. METHADONE HCL [Concomitant]
  11. CORTISOL [Concomitant]

REACTIONS (65)
  - AFFECTIVE DISORDER [None]
  - ANAEMIA [None]
  - ANXIETY [None]
  - APPENDICECTOMY [None]
  - ARTHRALGIA [None]
  - ASCITES [None]
  - AUTOIMMUNE DISORDER [None]
  - AUTOIMMUNE HEPATITIS [None]
  - CARDIAC MURMUR [None]
  - CELLULITIS [None]
  - CHOLECYSTITIS [None]
  - CHOLECYSTITIS CHRONIC [None]
  - COAGULOPATHY [None]
  - COLITIS [None]
  - COLITIS ULCERATIVE [None]
  - CONSTIPATION [None]
  - CONTUSION [None]
  - CONVULSION [None]
  - DEPRESSION [None]
  - DIABETES MELLITUS [None]
  - DIARRHOEA [None]
  - DRUG DEPENDENCE [None]
  - DYSPNOEA [None]
  - DYSURIA [None]
  - EYE PRURITUS [None]
  - GASTROINTESTINAL DISORDER [None]
  - HAEMORRHOIDS [None]
  - HEPATIC CIRRHOSIS [None]
  - HEPATIC FAILURE [None]
  - HYPOACUSIS [None]
  - HYPOKALAEMIA [None]
  - INFLAMMATORY BOWEL DISEASE [None]
  - INSOMNIA [None]
  - INTESTINAL HAEMORRHAGE [None]
  - IRRITABLE BOWEL SYNDROME [None]
  - MULTI-ORGAN DISORDER [None]
  - MUSCLE SPASMS [None]
  - MYALGIA [None]
  - NECK PAIN [None]
  - NEPHROLITHIASIS [None]
  - NIGHT SWEATS [None]
  - OBSESSIVE-COMPULSIVE DISORDER [None]
  - OEDEMA PERIPHERAL [None]
  - PAIN IN EXTREMITY [None]
  - PANCYTOPENIA [None]
  - PERIRECTAL ABSCESS [None]
  - PERITONITIS BACTERIAL [None]
  - PNEUMONIA [None]
  - PORTAL HYPERTENSION [None]
  - PORTAL HYPERTENSIVE GASTROPATHY [None]
  - PYELONEPHRITIS [None]
  - RAYNAUD'S PHENOMENON [None]
  - RENAL DISORDER [None]
  - RENAL FAILURE [None]
  - SJOGREN'S SYNDROME [None]
  - SPLENOMEGALY [None]
  - STAPHYLOCOCCAL INFECTION [None]
  - SYSTEMIC LUPUS ERYTHEMATOSUS [None]
  - TEMPERATURE INTOLERANCE [None]
  - THROMBOCYTOPENIA [None]
  - TOOTH DISORDER [None]
  - UMBILICAL HERNIA [None]
  - URINARY TRACT INFECTION [None]
  - VARICOSE VEIN [None]
  - WEIGHT INCREASED [None]
